FAERS Safety Report 5904396-0 (Version None)
Quarter: 2008Q3

REPORT INFORMATION
  Report Type: 
  Country: None (occurrence: None)
  Receive Date: 20080930
  Receipt Date: 20080930
  Transmission Date: 20090109
  Serious: Yes (Hospitalization, Disabling, Other)
  Sender: FDA-Public Use
  Company Number: None

PATIENT
  Sex: Female
  Weight: 76.2043 kg

DRUGS (4)
  1. FOSAMAX [Suspect]
     Indication: OSTEOPENIA
     Dosage: 70 MG ALENDRONATE WEEKLY PO, STARTING 2001
     Route: 048
     Dates: start: 20010101
  2. FOSAMAX [Suspect]
     Indication: OSTEOPOROSIS PROPHYLAXIS
     Dosage: 70 MG ALENDRONATE WEEKLY PO, STARTING 2001
     Route: 048
     Dates: start: 20010101
  3. FOSAMAX PLUS D [Suspect]
     Indication: OSTEOPENIA
     Dosage: 70 MG BISPHOS. 2800 IU VIT D WEEKLY PO, STARTING 2003
     Route: 048
     Dates: start: 20030101
  4. FOSAMAX PLUS D [Suspect]
     Indication: OSTEOPOROSIS PROPHYLAXIS
     Dosage: 70 MG BISPHOS. 2800 IU VIT D WEEKLY PO, STARTING 2003
     Route: 048
     Dates: start: 20030101

REACTIONS (6)
  - FALL [None]
  - FEMUR FRACTURE [None]
  - FRACTURE NONUNION [None]
  - MOBILITY DECREASED [None]
  - PAIN [None]
  - STRESS FRACTURE [None]
